FAERS Safety Report 7658529-9 (Version None)
Quarter: 2011Q3

REPORT INFORMATION
  Report Type: 
  Country: None (occurrence: None)
  Receive Date: 20110805
  Receipt Date: 20110721
  Transmission Date: 20111222
  Serious: Yes (Other)
  Sender: FDA-Public Use
  Company Number: US-ELI_LILLY_AND_COMPANY-US200911005363

PATIENT
  Sex: Female

DRUGS (2)
  1. FORTEO [Suspect]
     Indication: OSTEOPOROSIS
     Dosage: 20 UG, DAILY (1/D)
     Route: 065
     Dates: start: 20091001
  2. FORTEO [Suspect]
     Dosage: 20 UG, QD

REACTIONS (5)
  - MACULAR DEGENERATION [None]
  - VISUAL IMPAIRMENT [None]
  - HEADACHE [None]
  - NAUSEA [None]
  - INGROWING NAIL [None]
